FAERS Safety Report 5455006-0 (Version None)
Quarter: 2007Q3

REPORT INFORMATION
  Report Type: 
  Country: None (occurrence: None)
  Receive Date: 20070913
  Receipt Date: 20070828
  Transmission Date: 20080115
  Serious: Yes (Death)
  Sender: FDA-Public Use
  Company Number: 2007001167

PATIENT
  Age: 71 Year
  Sex: Male

DRUGS (1)
  1. ERLOTINIB (TABLET) (ERLOTINIB HCI) [Suspect]
     Indication: NON-SMALL CELL LUNG CANCER
     Dosage: 100 MG (QD), ORAL
     Route: 048
     Dates: start: 20060127, end: 20070216

REACTIONS (5)
  - APHASIA [None]
  - BRADYPHRENIA [None]
  - DYSPHONIA [None]
  - LEUKOENCEPHALOPATHY [None]
  - SOMNOLENCE [None]
